FAERS Safety Report 5259665-7 (Version None)
Quarter: 2007Q1

REPORT INFORMATION
  Report Type: 
  Country: None (occurrence: None)
  Receive Date: 20070307
  Receipt Date: 20070307
  Transmission Date: 20070707
  Serious: No
  Sender: FDA-Public Use
  Company Number: None

PATIENT
  Sex: Female
  Weight: 78.6 kg

DRUGS (2)
  1. CARBOPLATIN [Suspect]
     Dosage: 515 MG
  2. TAXOL [Suspect]
     Dosage: 315 MG

REACTIONS (3)
  - FATIGUE [None]
  - NEUROPATHY [None]
  - NEUTROPENIA [None]
